FAERS Safety Report 13761839 (Version 1)
Quarter: 2017Q3

REPORT INFORMATION
  Report Type: Spontaneous
  Country: CN (occurrence: CN)
  Receive Date: 20170718
  Receipt Date: 20170718
  Transmission Date: 20171127
  Serious: Yes (Other)
  Sender: FDA-Public Use
  Company Number: CN-SUN PHARMACEUTICAL INDUSTRIES LTD-2017R1-136149

PATIENT
  Age: 30 Year
  Sex: Female

DRUGS (7)
  1. PACLITAXEL. [Suspect]
     Active Substance: PACLITAXEL
     Dosage: 5 ADDITIONAL CYCLES
     Route: 065
  2. PACLITAXEL. [Suspect]
     Active Substance: PACLITAXEL
     Indication: PRIMITIVE NEUROECTODERMAL TUMOUR
     Dosage: 60MG/M2
     Route: 065
     Dates: start: 2014
  3. CISPLATIN. [Suspect]
     Active Substance: CISPLATIN
     Dosage: 5 ADDITIONAL CYCLES
     Route: 065
  4. BEVACIZUMAB. [Suspect]
     Active Substance: BEVACIZUMAB
     Indication: PRIMITIVE NEUROECTODERMAL TUMOUR
     Dosage: 200 MG
     Route: 034
     Dates: start: 2014
  5. CISPLATIN. [Suspect]
     Active Substance: CISPLATIN
     Indication: PRIMITIVE NEUROECTODERMAL TUMOUR
     Dosage: 270MG/M2
     Route: 065
     Dates: start: 2014
  6. NEDAPLATIN [Suspect]
     Active Substance: NEDAPLATIN
     Indication: PRIMITIVE NEUROECTODERMAL TUMOUR
     Dosage: 60MG/M2
     Route: 065
  7. GEMCITABINE [Suspect]
     Active Substance: GEMCITABINE\GEMCITABINE HYDROCHLORIDE
     Indication: PRIMITIVE NEUROECTODERMAL TUMOUR
     Route: 065

REACTIONS (2)
  - Disease progression [Recovering/Resolving]
  - Therapeutic response decreased [Unknown]

NARRATIVE: CASE EVENT DATE: 2015
